FAERS Safety Report 13959861 (Version 1)
Quarter: 2017Q3

REPORT INFORMATION
  Report Type: Spontaneous
  Country: DE (occurrence: DE)
  Receive Date: 20170912
  Receipt Date: 20170912
  Transmission Date: 20171128
  Serious: Yes (Other)
  Sender: FDA-Public Use
  Company Number: DE-BRISTOL-MYERS SQUIBB COMPANY-BMS-2017-011687

PATIENT
  Age: 29 Year
  Sex: Female

DRUGS (4)
  1. ABILIFY [Suspect]
     Active Substance: ARIPIPRAZOLE
     Indication: PRODUCT USED FOR UNKNOWN INDICATION
     Dosage: 5 MG, PER DAY
     Route: 048
     Dates: start: 201207
  2. ABILIFY [Suspect]
     Active Substance: ARIPIPRAZOLE
     Indication: PRODUCT USED FOR UNKNOWN INDICATION
     Dosage: 10 MG, PER DAY
     Route: 048
     Dates: start: 201209
  3. ABILIFY [Suspect]
     Active Substance: ARIPIPRAZOLE
     Indication: DEPRESSION
     Dosage: UNK MG, UNK
     Route: 048
  4. ABILIFY MAINTENA [Suspect]
     Active Substance: ARIPIPRAZOLE
     Indication: DEPRESSION
     Dosage: 400 MG, Q4WK
     Route: 030
     Dates: start: 201603, end: 201702

REACTIONS (10)
  - Vitamin B12 deficiency [Unknown]
  - Lactose intolerance [Unknown]
  - Ovarian cyst [Unknown]
  - Product use in unapproved indication [Unknown]
  - Malignant melanoma [Unknown]
  - Colitis ulcerative [Unknown]
  - Folate deficiency [Unknown]
  - Platelet count decreased [Not Recovered/Not Resolved]
  - Cyst [Unknown]
  - Iron deficiency [Unknown]

NARRATIVE: CASE EVENT DATE: 201503
